FAERS Safety Report 12324287 (Version 1)
Quarter: 2016Q2

REPORT INFORMATION
  Report Type: Report from Study
  Country: US (occurrence: US)
  Receive Date: 20160502
  Receipt Date: 20160502
  Transmission Date: 20160815
  Serious: No
  Sender: FDA-Public Use
  Company Number: US-ABBVIE-15P-163-1518984-00

PATIENT
  Age: 32 Year
  Sex: Female

DRUGS (4)
  1. ESTROGEN NOS [Concomitant]
     Active Substance: ESTROGENS
     Indication: HYSTERECTOMY
     Route: 065
  2. ESTROGEN NOS [Concomitant]
     Active Substance: ESTROGENS
     Indication: OESTROGEN REPLACEMENT THERAPY
  3. ANDROGEL [Suspect]
     Active Substance: TESTOSTERONE
     Indication: ACCIDENTAL EXPOSURE TO PRODUCT
     Route: 062
  4. ESTROGEN NOS [Concomitant]
     Active Substance: ESTROGENS
     Indication: HYSTERECTOMY
     Route: 065
     Dates: start: 2014

REACTIONS (3)
  - Hot flush [Recovered/Resolved]
  - Saliva testosterone increased [Not Recovered/Not Resolved]
  - Accidental exposure to product [Unknown]

NARRATIVE: CASE EVENT DATE: 2015
